FAERS Safety Report 25075892 (Version 1)
Quarter: 2025Q1

REPORT INFORMATION
  Report Type: Spontaneous
  Country: FR (occurrence: FR)
  Receive Date: 20250313
  Receipt Date: 20250313
  Transmission Date: 20250409
  Serious: Yes (Hospitalization, Other)
  Sender: GLAXOSMITHKLINE
  Company Number: FR-GSK-FR2025EME006713

PATIENT

DRUGS (3)
  1. JEMPERLI [Suspect]
     Active Substance: DOSTARLIMAB-GXLY
     Indication: Rectal cancer
     Dosage: 500 MG, Q3W
     Route: 042
     Dates: start: 20250121
  2. JEMPERLI [Suspect]
     Active Substance: DOSTARLIMAB-GXLY
     Dates: start: 20250224
  3. PIPERACILLIN SODIUM\TAZOBACTAM SODIUM [Concomitant]
     Active Substance: PIPERACILLIN SODIUM\TAZOBACTAM SODIUM
     Indication: Product used for unknown indication

REACTIONS (6)
  - Pyrexia [Recovered/Resolved]
  - Inflammation [Recovered/Resolved]
  - Malignant neoplasm progression [Unknown]
  - Tumour necrosis [Unknown]
  - Tumour pseudoprogression [Unknown]
  - Product use in unapproved indication [Unknown]

NARRATIVE: CASE EVENT DATE: 20250125
